FAERS Safety Report 6391058-1 (Version None)
Quarter: 2009Q4

REPORT INFORMATION
  Report Type: 
  Country: None (occurrence: None)
  Receive Date: 20091006
  Receipt Date: 20091006
  Transmission Date: 20100525
  Serious: Yes (Other)
  Sender: FDA-Public Use
  Company Number: None

PATIENT
  Age: 18 Year
  Sex: Female
  Weight: 54.4316 kg

DRUGS (2)
  1. YAZ [Suspect]
     Indication: MENSTRUATION IRREGULAR
     Dates: start: 20090920, end: 20091003
  2. YAZ [Suspect]
     Indication: MOOD SWINGS
     Dates: start: 20090920, end: 20091003

REACTIONS (2)
  - ACNE [None]
  - DIARRHOEA [None]
